FAERS Safety Report 5650384-1 (Version None)
Quarter: 2008Q1

REPORT INFORMATION
  Report Type: 
  Country: None (occurrence: None)
  Receive Date: 20080304
  Receipt Date: 20080304
  Transmission Date: 20080703
  Serious: Yes (Life-Threatening, Hospitalization)
  Sender: FDA-Public Use
  Company Number: None

PATIENT
  Age: 61 Year
  Sex: Female
  Weight: 69 kg

DRUGS (12)
  1. IODIXANOL 320MGI/ML AMERSHAM HEALTH [Suspect]
     Indication: FISTULOGRAM
     Dosage: 150 ML  ONCE  IV BOLUS
     Route: 040
     Dates: start: 20070425, end: 20070425
  2. LISINOPRIL [Concomitant]
  3. ACETAMINOPHEN [Concomitant]
  4. MULTI-VITAMIN [Concomitant]
  5. ASPIRIN [Concomitant]
  6. CLOPIDOGREL [Concomitant]
  7. OMEPRAZOLE [Concomitant]
  8. ATORVASTATIN CALCIUM [Concomitant]
  9. FOSRENOL [Concomitant]
  10. AMLODIPINE [Concomitant]
  11. CLONIDINE [Concomitant]
  12. ENALAPRIL MALEATE [Concomitant]

REACTIONS (5)
  - ATRIAL FIBRILLATION [None]
  - DYSPNOEA [None]
  - LIP OEDEMA [None]
  - STRIDOR [None]
  - TONGUE OEDEMA [None]
